FAERS Safety Report 25066444 (Version 1)
Quarter: 2025Q1

REPORT INFORMATION
  Report Type: Report from Study
  Country: CA (occurrence: CA)
  Receive Date: 20250312
  Receipt Date: 20250312
  Transmission Date: 20250409
  Serious: Yes (Other)
  Sender: EMD SERONO INC
  Company Number: CA-Merck Healthcare KGaA-2025002249

PATIENT
  Sex: Male

DRUGS (2)
  1. SAIZEN [Suspect]
     Active Substance: SOMATROPIN
     Indication: Growth hormone deficiency
  2. SAIZEN [Suspect]
     Active Substance: SOMATROPIN

REACTIONS (3)
  - Ligament rupture [Recovering/Resolving]
  - Testicular operation [Recovering/Resolving]
  - Hip surgery [Recovering/Resolving]
